FAERS Safety Report 24286397 (Version 1)
Quarter: 2024Q3

REPORT INFORMATION
  Report Type: Spontaneous
  Country: FR (occurrence: FR)
  Receive Date: 20240905
  Receipt Date: 20240905
  Transmission Date: 20241017
  Serious: Yes (Other)
  Sender: TEVA
  Company Number: FR-TEVA-VS-3238372

PATIENT
  Age: 49 Year
  Sex: Female

DRUGS (9)
  1. METHOTREXATE [Suspect]
     Active Substance: METHOTREXATE
     Indication: Prophylaxis against graft versus host disease
     Route: 065
  2. CARMUSTINE [Suspect]
     Active Substance: CARMUSTINE
     Indication: Cutaneous T-cell lymphoma
     Route: 065
  3. DOXORUBICIN [Concomitant]
     Active Substance: DOXORUBICIN
     Indication: Cutaneous T-cell lymphoma
     Route: 065
  4. Immunoglobulin [Concomitant]
     Indication: Acute graft versus host disease in skin
     Route: 042
  5. MECHLORETHAMINE [Suspect]
     Active Substance: MECHLORETHAMINE
     Indication: Cutaneous T-cell lymphoma
     Route: 065
  6. BEXAROTENE [Concomitant]
     Active Substance: BEXAROTENE
     Indication: Cutaneous T-cell lymphoma
     Route: 065
  7. PREDNISONE [Concomitant]
     Active Substance: PREDNISONE
     Indication: Acute graft versus host disease in skin
     Route: 065
  8. RUXOLITINIB [Suspect]
     Active Substance: RUXOLITINIB
     Indication: Acute graft versus host disease in skin
     Route: 065
  9. CYCLOSPORINE [Suspect]
     Active Substance: CYCLOSPORINE
     Indication: Prophylaxis against graft versus host disease
     Route: 065

REACTIONS (2)
  - Cutaneous T-cell lymphoma recurrent [Recovering/Resolving]
  - Drug ineffective [Unknown]
